FAERS Safety Report 5432240-7 (Version None)
Quarter: 2007Q3

REPORT INFORMATION
  Report Type: 
  Country: None (occurrence: None)
  Receive Date: 20070830
  Receipt Date: 20070820
  Transmission Date: 20080115
  Serious: Yes (Hospitalization, Other)
  Sender: FDA-Public Use
  Company Number: FR-PFIZER INC-2007069507

PATIENT
  Sex: Male

DRUGS (7)
  1. XALACOM [Suspect]
     Indication: GLAUCOMA
     Dates: start: 20030101, end: 20070101
  2. XALATAN [Suspect]
     Indication: GLAUCOMA
     Dates: start: 20060101, end: 20070101
  3. ALPHAGAN [Suspect]
     Indication: GLAUCOMA
     Dates: start: 20060101, end: 20070101
  4. LUMIGAN [Suspect]
     Indication: GLAUCOMA
     Dates: start: 20070101, end: 20070101
  5. COMBIGAN [Suspect]
     Indication: GLAUCOMA
     Dates: start: 20070101, end: 20070101
  6. GANFORT [Suspect]
     Indication: GLAUCOMA
     Dates: start: 20070401, end: 20070101
  7. CARTEOL [Suspect]
     Dates: start: 20070101, end: 20070101

REACTIONS (8)
  - BLEPHARITIS [None]
  - CONJUNCTIVAL HAEMORRHAGE [None]
  - DRUG INEFFECTIVE [None]
  - ERYTHEMA OF EYELID [None]
  - INTRAOCULAR PRESSURE INCREASED [None]
  - NEOVASCULARISATION [None]
  - OCULAR HYPERAEMIA [None]
  - TOXIC SKIN ERUPTION [None]
